FAERS Safety Report 14186826 (Version 3)
Quarter: 2018Q1

REPORT INFORMATION
  Report Type: Spontaneous
  Country: DE (occurrence: DE)
  Receive Date: 20171114
  Receipt Date: 20180316
  Transmission Date: 20180508
  Serious: Yes (Hospitalization)
  Sender: FDA-Public Use
  Company Number: DE-009507513-1711DEU002652

PATIENT
  Sex: Female

DRUGS (1)
  1. CIRCLET [Suspect]
     Active Substance: ETHINYL ESTRADIOL\ETONOGESTREL
     Indication: PRODUCT USED FOR UNKNOWN INDICATION
     Dosage: 1 DF, UNK
     Route: 067

REACTIONS (3)
  - Cervix neoplasm [Recovered/Resolved]
  - Patient-device incompatibility [Recovered/Resolved]
  - Medical device site reaction [Recovered/Resolved]

NARRATIVE: CASE EVENT DATE: 20140901
